FAERS Safety Report 16915930 (Version 1)
Quarter: 2019Q4

REPORT INFORMATION
  Report Type: Spontaneous
  Country: GB (occurrence: GB)
  Receive Date: 20191014
  Receipt Date: 20191014
  Transmission Date: 20200122
  Serious: Yes (Disabling)
  Sender: FDA-Public Use
  Company Number: GB-MYLANLABS-2019M1096429

PATIENT
  Age: 83 Year
  Sex: Female
  Weight: 124 kg

DRUGS (13)
  1. WARFARIN [Suspect]
     Active Substance: WARFARIN
     Indication: PRODUCT USED FOR UNKNOWN INDICATION
     Dosage: 1 MILLIGRAM
     Dates: start: 20190523
  2. INDOMETACIN [Concomitant]
     Active Substance: INDOMETHACIN
     Dosage: TAKE ONE TO TWO 3 TIMES/DAY. TAKE AFTER FOOD.
     Dates: start: 20180615, end: 20190620
  3. QUININE [Concomitant]
     Active Substance: QUININE
     Dosage: 1/2 TAB OR1AT NIGHT WHEN REQUIRED
     Dates: start: 20190411, end: 20190509
  4. METOCLOPRAMIDE. [Concomitant]
     Active Substance: METOCLOPRAMIDE
     Dosage: TAKE 1 3 TIMES/DAY IF NEEDED
     Dates: start: 20180615
  5. LAXIDO [Concomitant]
     Active Substance: POLYETHYLENE GLYCOL 3350\POTASSIUM CHLORIDE\SODIUM BICARBONATE\SODIUM CHLORIDE
     Dosage: TAKE 1- 2DAILY TO CLEAR LOADED COLON
     Dates: start: 20190114
  6. VENTOLIN [Concomitant]
     Active Substance: ALBUTEROL SULFATE
     Dosage: INHALE 2 DOSES UPTO 4TIMES/DAY
     Route: 055
     Dates: start: 20190213, end: 20190626
  7. CYCLIZINE [Concomitant]
     Active Substance: CYCLIZINE
     Dosage: 3 DOSAGE FORM, QD
     Dates: start: 20180615
  8. INDAPAMIDE. [Concomitant]
     Active Substance: INDAPAMIDE
     Dosage: TAKE ONE EACH MORNING
     Dates: start: 20180615, end: 20190620
  9. LANSOPRAZOLE. [Concomitant]
     Active Substance: LANSOPRAZOLE
     Dosage: 1-2/DAY/ADVISED BY EAR,NOSE,THROAT TEAM
     Dates: start: 20180615
  10. ATORVASTATIN [Concomitant]
     Active Substance: ATORVASTATIN
     Dosage: TAKE ONE DAILY
     Dates: start: 20180615
  11. FOSTAIR [Concomitant]
     Active Substance: BECLOMETHASONE\FORMOTEROL
     Dosage: INHALE 2 PUFFS THREE TIMES A DAY
     Route: 055
     Dates: start: 20190213, end: 20190626
  12. BISOPROLOL [Concomitant]
     Active Substance: BISOPROLOL
     Dosage: TAKE ONE IN THE AFTERNOON
     Dates: start: 20180615
  13. DERMOL                             /01330701/ [Concomitant]
     Dosage: USE TO CLEANSE LEGS
     Dates: start: 20180615, end: 20190620

REACTIONS (1)
  - Arthritis [Unknown]

NARRATIVE: CASE EVENT DATE: 20190626
